FAERS Safety Report 9351055 (Version 1)
Quarter: 2013Q2

REPORT INFORMATION
  Report Type: Spontaneous
  Country: US (occurrence: US)
  Receive Date: 20130617
  Receipt Date: 20130617
  Transmission Date: 20140414
  Serious: Yes (Other)
  Sender: FDA-Public Use
  Company Number: US-JNJFOC-20130607939

PATIENT
  Age: 62 Year
  Sex: Female

DRUGS (2)
  1. NICOTINE POLACRILEX GUM 2 MG [Suspect]
     Indication: SMOKING CESSATION THERAPY
     Route: 065
  2. NICOTINE FRESHMINT GUM 4 MG [Suspect]
     Indication: SMOKING CESSATION THERAPY
     Route: 065

REACTIONS (5)
  - Nicotine dependence [Not Recovered/Not Resolved]
  - Intentional drug misuse [Unknown]
  - Euphoric mood [Not Recovered/Not Resolved]
  - Feeling abnormal [Not Recovered/Not Resolved]
  - Nausea [Not Recovered/Not Resolved]
